FAERS Safety Report 6171839-X (Version None)
Quarter: 2009Q2

REPORT INFORMATION
  Report Type: 
  Country: None (occurrence: None)
  Receive Date: 20090428
  Receipt Date: 20090428
  Transmission Date: 20091009
  Serious: Yes (Hospitalization)
  Sender: FDA-Public Use
  Company Number: None

PATIENT
  Age: 78 Year
  Sex: Female

DRUGS (1)
  1. SEROQUEL [Suspect]
     Indication: DEMENTIA
     Dates: start: 20090320, end: 20090322

REACTIONS (3)
  - AGRANULOCYTOSIS [None]
  - LETHARGY [None]
  - SOMNOLENCE [None]
